FAERS Safety Report 10113497 (Version 1)
Quarter: 2014Q2

REPORT INFORMATION
  Report Type: Spontaneous
  Country: US (occurrence: US)
  Receive Date: 20140425
  Receipt Date: 20140425
  Transmission Date: 20141212
  Serious: Yes (Other)
  Sender: FDA-Public Use
  Company Number: US-BAYER-2014-059669

PATIENT
  Age: 52 Year
  Sex: Female

DRUGS (8)
  1. YAZ [Suspect]
     Route: 048
  2. SYNTHROID [Concomitant]
  3. PROPRANOLOL [Concomitant]
  4. METFORMIN [Concomitant]
  5. WELLBUTRIN [Concomitant]
  6. LORAZEPAM [Concomitant]
  7. SIMVASTATIN [Concomitant]
  8. BACTRIM [Concomitant]

REACTIONS (1)
  - Pulmonary embolism [None]
